FAERS Safety Report 6859227-1 (Version None)
Quarter: 2010Q3

REPORT INFORMATION
  Report Type: 
  Country: None (occurrence: None)
  Receive Date: 20100719
  Receipt Date: 20080219
  Transmission Date: 20110219
  Serious: No
  Sender: FDA-Public Use
  Company Number: US-PFIZER INC-2008017558

PATIENT
  Sex: Female
  Weight: 57.7 kg

DRUGS (2)
  1. CHANTIX [Suspect]
     Indication: SMOKING CESSATION THERAPY
     Dates: start: 20080201
  2. CONTRACEPTIVE, UNSPECIFIED [Concomitant]

REACTIONS (5)
  - DEPRESSION [None]
  - NAUSEA [None]
  - SLEEP DISORDER [None]
  - UNEVALUABLE EVENT [None]
  - URINE ODOUR ABNORMAL [None]
